FAERS Safety Report 6678802-0 (Version None)
Quarter: 2010Q2

REPORT INFORMATION
  Report Type: 
  Country: None (occurrence: None)
  Receive Date: 20100413
  Receipt Date: 20100406
  Transmission Date: 20101027
  Serious: Yes (Other)
  Sender: FDA-Public Use
  Company Number: US-SANOFI-AVENTIS-2010SA012260

PATIENT
  Age: 72 Year
  Sex: Male
  Weight: 104.32 kg

DRUGS (5)
  1. PLAVIX [Suspect]
     Route: 048
     Dates: start: 20000918, end: 20021201
  2. PLAVIX [Suspect]
     Route: 048
     Dates: start: 20030101
  3. HYZAAR [Concomitant]
  4. ASPIRIN [Concomitant]
  5. FOLIC ACID [Concomitant]

REACTIONS (4)
  - CAROTID ARTERY OCCLUSION [None]
  - CORONARY ARTERY OCCLUSION [None]
  - CORONARY ARTERY THROMBOSIS [None]
  - MYOCARDIAL INFARCTION [None]
